FAERS Safety Report 22931915 (Version 10)
Quarter: 2024Q1

REPORT INFORMATION
  Report Type: Report from Study
  Country: US (occurrence: US)
  Receive Date: 20230912
  Receipt Date: 20240314
  Transmission Date: 20240410
  Serious: Yes (Other)
  Sender: FDA-Public Use
  Company Number: US-ACADIA PHARMACEUTICALS INC.-ACA-2023-TRF-003599

PATIENT
  Age: 12 Year
  Sex: Female

DRUGS (14)
  1. DAYBUE [Suspect]
     Active Substance: TROFINETIDE
     Indication: Rett syndrome
     Dosage: 50 MILLILITER, BID VIA G-TUBE
     Dates: start: 202307
  2. DAYBUE [Suspect]
     Active Substance: TROFINETIDE
     Dosage: 40 MILLILITER, BID VIA G-TUBE
     Dates: start: 20230907
  3. DAYBUE [Suspect]
     Active Substance: TROFINETIDE
     Dosage: 50 MILLILITER, BID VIA G-TUBE
  4. DAYBUE [Suspect]
     Active Substance: TROFINETIDE
     Dosage: 30 MILLILITER, BID VIA G-TUBE
  5. DAYBUE [Suspect]
     Active Substance: TROFINETIDE
     Dosage: 35 MILLILITER, BID VIA G-TUBE
     Dates: start: 20240123
  6. DAYBUE [Suspect]
     Active Substance: TROFINETIDE
     Dosage: 31 MILLILITER, BID VIA G-TUBE
     Dates: start: 20240123
  7. DAYBUE [Suspect]
     Active Substance: TROFINETIDE
     Dosage: SLOWLY TITRATING UP VIA G-TUBE
  8. KLONOPIN [Concomitant]
     Active Substance: CLONAZEPAM
  9. POLYETHYLENE GLYCOLS [Concomitant]
     Active Substance: POLYETHYLENE GLYCOLS
  10. VALTOCO [Concomitant]
     Active Substance: DIAZEPAM
     Dosage: 15 MILLIGRAM
  11. BACLOFEN [Concomitant]
     Active Substance: BACLOFEN
  12. SINEMET [Concomitant]
     Active Substance: CARBIDOPA\LEVODOPA
  13. TRILEPTAL [Concomitant]
     Active Substance: OXCARBAZEPINE
  14. DESYREL [Concomitant]
     Active Substance: TRAZODONE HYDROCHLORIDE

REACTIONS (8)
  - Dystonia [Unknown]
  - Seizure [Unknown]
  - Prescribed underdose [Not Recovered/Not Resolved]
  - Diarrhoea [Recovering/Resolving]
  - Diarrhoea [Not Recovered/Not Resolved]
  - Diarrhoea [Recovered/Resolved]
  - Diarrhoea [Recovering/Resolving]
  - Diarrhoea [Recovering/Resolving]

NARRATIVE: CASE EVENT DATE: 20230701
